FAERS Safety Report 25830787 (Version 1)
Quarter: 2025Q3

REPORT INFORMATION
  Report Type: Spontaneous
  Country: GB (occurrence: GB)
  Receive Date: 20250922
  Receipt Date: 20250922
  Transmission Date: 20251020
  Serious: Yes (Hospitalization, Other)
  Sender: MYLAN
  Company Number: GB-MYLANLABS-2025M1079355

PATIENT
  Sex: Male

DRUGS (1)
  1. CLOZARIL [Suspect]
     Active Substance: CLOZAPINE
     Indication: Schizophrenia
     Dosage: UNK, BID (150MG OM + 400MG ON)
     Dates: start: 20150331

REACTIONS (3)
  - Schizoaffective disorder [Unknown]
  - Condition aggravated [Unknown]
  - Antipsychotic drug level decreased [Unknown]

NARRATIVE: CASE EVENT DATE: 20250901
